FAERS Safety Report 9413368 (Version 2)
Quarter: 2014Q3

REPORT INFORMATION
  Report Type: Report from Study
  Country: FR (occurrence: FR)
  Receive Date: 20130722
  Receipt Date: 20140919
  Transmission Date: 20150326
  Serious: Yes (Other)
  Sender: FDA-Public Use
  Company Number: FR-ROCHE-1247756

PATIENT
  Age: 55 Year
  Sex: Male
  Weight: 97.5 kg

DRUGS (12)
  1. ACTISKENAN [Concomitant]
     Active Substance: MORPHINE SULFATE
     Indication: BACK PAIN
     Route: 048
     Dates: start: 20130703
  2. PICTILISIB [Suspect]
     Active Substance: PICTILISIB
     Indication: NON-SMALL CELL LUNG CANCER RECURRENT
     Dosage: LAST DOSE PRIOR TO SAE: 09/JUL/2013
     Route: 048
     Dates: start: 20130123
  3. PARACETAMOL [Concomitant]
     Active Substance: ACETAMINOPHEN
     Indication: BACK PAIN
     Route: 048
     Dates: start: 20130123
  4. DAFALGAN [Concomitant]
     Active Substance: ACETAMINOPHEN
     Route: 048
     Dates: start: 20130703
  5. CARBOPLATIN. [Suspect]
     Active Substance: CARBOPLATIN
     Indication: NON-SMALL CELL LUNG CANCER RECURRENT
     Dosage: MOST RECENT DOSE PRIOR TO SAE: 03/APR/2013
     Route: 042
     Dates: start: 20130123
  6. MYOLASTAN [Concomitant]
     Active Substance: TETRAZEPAM
     Indication: BACK PAIN
     Route: 065
     Dates: start: 20130130
  7. SKENAN [Concomitant]
     Active Substance: MORPHINE SULFATE
     Route: 048
     Dates: start: 20130610, end: 20130703
  8. FORLAX [Concomitant]
     Active Substance: POLYETHYLENE GLYCOL 4000
     Indication: CONSTIPATION
     Route: 048
     Dates: start: 20130123
  9. PACLITAXEL. [Suspect]
     Active Substance: PACLITAXEL
     Indication: NON-SMALL CELL LUNG CANCER RECURRENT
     Dosage: MOST RECENT DOSE PRIOR TO SAE: 03/APR/2013
     Route: 042
     Dates: start: 20130123
  10. MOTILIUM [Concomitant]
     Active Substance: DOMPERIDONE
     Indication: CONSTIPATION
     Route: 048
     Dates: start: 20130606, end: 20130612
  11. BEVACIZUMAB [Suspect]
     Active Substance: BEVACIZUMAB
     Indication: NON-SMALL CELL LUNG CANCER RECURRENT
     Dosage: MOST RECENT DOSE PRIOR TO SAE: 03/JUL/2013
     Route: 042
     Dates: start: 20130123
  12. SKENAN [Concomitant]
     Active Substance: MORPHINE SULFATE
     Indication: BACK PAIN
     Route: 048
     Dates: start: 20130703

REACTIONS (1)
  - Phlebitis [Recovered/Resolved]

NARRATIVE: CASE EVENT DATE: 20130708
